FAERS Safety Report 6453930-3 (Version None)
Quarter: 2009Q4

REPORT INFORMATION
  Report Type: 
  Country: None (occurrence: None)
  Receive Date: 20091117
  Receipt Date: 20091102
  Transmission Date: 20100525
  Serious: Yes (Other)
  Sender: FDA-Public Use
  Company Number: 2009EK003934

PATIENT
  Age: 45 Year
  Sex: Male

DRUGS (7)
  1. CARDENE [Suspect]
     Indication: DRUG USE FOR UNKNOWN INDICATION
     Dosage: 5 MG;QH;IV ; 15 MG;QH;IV ; 5 MG;QH;IV
     Route: 042
     Dates: start: 20090820, end: 20090820
  2. CARDENE [Suspect]
     Indication: DRUG USE FOR UNKNOWN INDICATION
     Dosage: 5 MG;QH;IV ; 15 MG;QH;IV ; 5 MG;QH;IV
     Route: 042
     Dates: start: 20090821, end: 20090821
  3. CARDENE [Suspect]
     Indication: DRUG USE FOR UNKNOWN INDICATION
     Dosage: 5 MG;QH;IV ; 15 MG;QH;IV ; 5 MG;QH;IV
     Route: 042
     Dates: start: 20090821
  4. CLEVIPREX [Suspect]
     Indication: HYPERTENSION
     Dosage: 2 MG;QH;IV ; 21 MG;QH;IV ; 21 MG;QH;IV ; 21 MG;QH;IV
     Route: 042
     Dates: start: 20090820, end: 20090820
  5. CLEVIPREX [Suspect]
     Indication: HYPERTENSION
     Dosage: 2 MG;QH;IV ; 21 MG;QH;IV ; 21 MG;QH;IV ; 21 MG;QH;IV
     Route: 042
     Dates: start: 20090820, end: 20090820
  6. CLEVIPREX [Suspect]
     Indication: HYPERTENSION
     Dosage: 2 MG;QH;IV ; 21 MG;QH;IV ; 21 MG;QH;IV ; 21 MG;QH;IV
     Route: 042
     Dates: start: 20090821, end: 20090821
  7. CLEVIPREX [Suspect]
     Indication: HYPERTENSION
     Dosage: 2 MG;QH;IV ; 21 MG;QH;IV ; 21 MG;QH;IV ; 21 MG;QH;IV
     Route: 042
     Dates: start: 20090821, end: 20090821

REACTIONS (4)
  - AORTIC DISSECTION [None]
  - CIRCULATORY COLLAPSE [None]
  - HYPERTENSION [None]
  - HYPOXIA [None]
